FAERS Safety Report 19646635 (Version 1)
Quarter: 2021Q3

REPORT INFORMATION
  Report Type: Report from Study
  Country: US (occurrence: US)
  Receive Date: 20210802
  Receipt Date: 20210802
  Transmission Date: 20211014
  Serious: Yes (Hospitalization)
  Sender: FDA-Public Use
  Company Number: US-TAKEDA-US202003647

PATIENT
  Age: 61 Year
  Sex: Male

DRUGS (8)
  1. TEDUGLUTIDE [Suspect]
     Active Substance: TEDUGLUTIDE
     Indication: SHORT-BOWEL SYNDROME
     Dosage: 2.1 MILLIGRAM, QD
     Route: 058
     Dates: start: 20191029
  2. TEDUGLUTIDE [Suspect]
     Active Substance: TEDUGLUTIDE
     Dosage: 2.16 MILLIGRAM, QD
     Route: 058
     Dates: start: 20191029
  3. TEDUGLUTIDE [Suspect]
     Active Substance: TEDUGLUTIDE
     Dosage: 2.16 MILLIGRAM, QD
     Route: 058
     Dates: start: 20191029
  4. TEDUGLUTIDE [Suspect]
     Active Substance: TEDUGLUTIDE
     Indication: SHORT-BOWEL SYNDROME
     Dosage: 2.1 MILLIGRAM, QD
     Route: 058
     Dates: start: 20191029
  5. TEDUGLUTIDE [Suspect]
     Active Substance: TEDUGLUTIDE
     Indication: SHORT-BOWEL SYNDROME
     Dosage: 2.1 MILLIGRAM, QD
     Route: 058
     Dates: start: 20191029
  6. TEDUGLUTIDE [Suspect]
     Active Substance: TEDUGLUTIDE
     Dosage: 2.16 MILLIGRAM, QD
     Route: 058
     Dates: start: 20191029
  7. TEDUGLUTIDE [Suspect]
     Active Substance: TEDUGLUTIDE
     Dosage: 2.16 MILLIGRAM, QD
     Route: 058
     Dates: start: 20191029
  8. TEDUGLUTIDE [Suspect]
     Active Substance: TEDUGLUTIDE
     Indication: SHORT-BOWEL SYNDROME
     Dosage: 2.1 MILLIGRAM, QD
     Route: 058
     Dates: start: 20191029

REACTIONS (6)
  - Flatulence [Unknown]
  - Dehydration [Unknown]
  - Abdominal pain upper [Unknown]
  - Fluid retention [Unknown]
  - Abdominal discomfort [Unknown]
  - Dyspnoea [Unknown]

NARRATIVE: CASE EVENT DATE: 20200116
